FAERS Safety Report 17077241 (Version 2)
Quarter: 2024Q1

REPORT INFORMATION
  Report Type: Spontaneous
  Country: US (occurrence: US)
  Receive Date: 20191126
  Receipt Date: 20240205
  Transmission Date: 20240409
  Serious: Yes (Other)
  Sender: FDA-Public Use
  Company Number: US-AMGEN-USASP2019194067

PATIENT

DRUGS (6)
  1. PEGFILGRASTIM [Suspect]
     Active Substance: PEGFILGRASTIM
     Indication: Prophylaxis
     Dosage: UNK UNK, Q2WK (DAYS 4 AND 18 OF EACH CYCLE)
     Route: 058
  2. FLUOROURACIL [Concomitant]
     Active Substance: FLUOROURACIL
     Indication: Neoplasm malignant
     Dosage: 2400 MILLIGRAM/SQ. METER, Q2WK (DAYS1 AND 15 OF EACH 28-DAY CYCLE), OVER 46 HOURS (NO BOLUS),
     Route: 042
  3. LEUCOVORIN [Concomitant]
     Active Substance: LEUCOVORIN\LEUCOVORIN CALCIUM
     Indication: Neoplasm malignant
     Dosage: 400 MILLIGRAM/SQ. METER, Q2WK (DAYS 1 AND 15 OF EACH 28-DAY CYCLE)
     Route: 042
  4. IRINOTECAN [Concomitant]
     Active Substance: IRINOTECAN
     Indication: Neoplasm malignant
     Dosage: UNK UNK, Q2WK (DAYS 1 AND 15 OF EACH 28-DAY CYCLE)
     Route: 042
  5. IRINOTECAN [Concomitant]
     Active Substance: IRINOTECAN
     Dosage: 180, 135, AND GO MG/M
  6. PACLITAXEL [Concomitant]
     Active Substance: PACLITAXEL
     Indication: Neoplasm malignant
     Dosage: 125 MILLIGRAM/SQ. METER, Q2WK (DAYS 1 AND 15 OF EACH 28-DAY CYCLE)
     Route: 042

REACTIONS (18)
  - White blood cell count decreased [Unknown]
  - Neutrophil count decreased [Unknown]
  - Peripheral sensory neuropathy [Unknown]
  - Diarrhoea [Unknown]
  - Fatigue [Unknown]
  - Decreased appetite [Unknown]
  - Vomiting [Unknown]
  - Constipation [Unknown]
  - Abdominal pain [Unknown]
  - Nausea [Unknown]
  - Blood alkaline phosphatase increased [Unknown]
  - Dysgeusia [Unknown]
  - Infusion related reaction [Unknown]
  - Anaemia [Unknown]
  - Alopecia [Unknown]
  - Off label use [Unknown]
  - Disease progression [Unknown]
  - Platelet count decreased [Unknown]
